FAERS Safety Report 15439001 (Version 9)
Quarter: 2020Q1

REPORT INFORMATION
  Report Type: Spontaneous
  Country: US (occurrence: US)
  Receive Date: 20180928
  Receipt Date: 20200303
  Transmission Date: 20200409
  Serious: Yes (Other)
  Sender: FDA-Public Use
  Company Number: US-PFIZER INC-2018391241

PATIENT
  Age: 71 Year
  Sex: Female
  Weight: 99.79 kg

DRUGS (3)
  1. LYRICA [Suspect]
     Active Substance: PREGABALIN
     Indication: NEUROPATHY PERIPHERAL
     Dosage: 50 MG, 4X/DAY(EVERY 6 HOURS)
     Route: 048
  2. LYRICA [Suspect]
     Active Substance: PREGABALIN
     Dosage: 75 MG, 4X/DAY
     Route: 048
  3. TRESIBA [Concomitant]
     Active Substance: INSULIN DEGLUDEC
     Indication: DIABETES MELLITUS
     Dosage: 40 IU, 1X/DAY (AT BED TIME)

REACTIONS (10)
  - Drug dependence [Unknown]
  - Arthropathy [Unknown]
  - Sleep disorder [Unknown]
  - Malaise [Unknown]
  - Influenza [Unknown]
  - Movement disorder [Unknown]
  - Hypersensitivity [Unknown]
  - Intervertebral disc protrusion [Unknown]
  - Aphonia [Unknown]
  - Back disorder [Unknown]
